FAERS Safety Report 8184301-X (Version None)
Quarter: 2012Q1

REPORT INFORMATION
  Report Type: 
  Country: None (occurrence: None)
  Receive Date: 20120305
  Receipt Date: 20120221
  Transmission Date: 20120608
  Serious: Yes (Hospitalization)
  Sender: FDA-Public Use
  Company Number: US-ACTELION-A-NJ2011-52404

PATIENT

DRUGS (2)
  1. VIAGRA [Concomitant]
  2. TRACLEER [Suspect]
     Indication: PULMONARY ARTERIAL HYPERTENSION
     Dosage: 31.25 MG, BID
     Route: 048
     Dates: start: 20110215

REACTIONS (4)
  - MEDICAL DEVICE COMPLICATION [None]
  - STAPHYLOCOCCAL INFECTION [None]
  - DYSPNOEA [None]
  - DEVICE LEAKAGE [None]
